FAERS Safety Report 25386141 (Version 1)
Quarter: 2025Q2

REPORT INFORMATION
  Report Type: Spontaneous
  Country: US (occurrence: US)
  Receive Date: 20250602
  Receipt Date: 20250602
  Transmission Date: 20250717
  Serious: No
  Sender: CALLIDITAS THERAPEUTICS AB
  Company Number: US-Calliditas-2025CAL01404

PATIENT
  Age: 23 Year
  Sex: Male

DRUGS (9)
  1. TARPEYO [Suspect]
     Active Substance: BUDESONIDE
     Indication: IgA nephropathy
     Dosage: TAKE 4 CAPSULES (16 MG) BY MOUTH ONCE DAILY
     Route: 048
     Dates: start: 20250512
  2. PROAIR HFA [Concomitant]
     Active Substance: ALBUTEROL SULFATE
  3. REXULTI [Concomitant]
     Active Substance: BREXPIPRAZOLE
  4. DAPSONE [Concomitant]
     Active Substance: DAPSONE
  5. GABAPENTIN [Concomitant]
     Active Substance: GABAPENTIN
  6. LISINOPRIL [Concomitant]
     Active Substance: LISINOPRIL
  7. GUANFACINE [Concomitant]
     Active Substance: GUANFACINE
  8. LEVOMEFOLATE CALCIUM [Concomitant]
     Active Substance: LEVOMEFOLATE CALCIUM
  9. TESTOSTERONE [Concomitant]
     Active Substance: TESTOSTERONE

REACTIONS (1)
  - Arthralgia [Not Recovered/Not Resolved]
